FAERS Safety Report 21649927 (Version 3)
Quarter: 2023Q2

REPORT INFORMATION
  Report Type: Spontaneous
  Country: JP (occurrence: JP)
  Receive Date: 20221128
  Receipt Date: 20230613
  Transmission Date: 20230721
  Serious: Yes (Hospitalization, Other)
  Sender: FDA-Public Use
  Company Number: JP-ASPEN-JPL2021JP002852AA

PATIENT
  Age: 43 Year
  Sex: Male

DRUGS (1)
  1. FLUMAZENIL [Suspect]
     Active Substance: FLUMAZENIL
     Indication: Product used for unknown indication
     Dosage: 0.5 MG
     Route: 065

REACTIONS (1)
  - Anaphylactic shock [Recovering/Resolving]
